FAERS Safety Report 22129829 (Version 1)
Quarter: 2023Q1

REPORT INFORMATION
  Report Type: Spontaneous
  Country: US (occurrence: US)
  Receive Date: 20230323
  Receipt Date: 20230323
  Transmission Date: 20230418
  Serious: No
  Sender: FDA-Public Use
  Company Number: US-MYOVANT SCIENCES GMBH-2022MYSCI1200600

PATIENT
  Age: 46 Year
  Sex: Female

DRUGS (1)
  1. MYFEMBREE [Suspect]
     Active Substance: ESTRADIOL HEMIHYDRATE\NORETHINDRONE ACETATE\RELUGOLIX
     Indication: Uterine leiomyoma
     Dosage: 1 TAB, QD
     Route: 048

REACTIONS (7)
  - Back pain [Unknown]
  - Nausea [Unknown]
  - Dysmenorrhoea [Unknown]
  - Muscle spasms [Unknown]
  - Headache [Unknown]
  - Heavy menstrual bleeding [Unknown]
  - Sciatica [Unknown]

NARRATIVE: CASE EVENT DATE: 20221223
